FAERS Safety Report 9192814 (Version 1)
Quarter: 2013Q1

REPORT INFORMATION
  Report Type: Spontaneous
  Country: FR (occurrence: FR)
  Receive Date: 20130327
  Receipt Date: 20130327
  Transmission Date: 20140127
  Serious: Yes (Hospitalization)
  Sender: FDA-Public Use
  Company Number: FR-PFIZER INC-2013094091

PATIENT
  Age: 79 Year
  Sex: Male

DRUGS (6)
  1. LYRICA [Suspect]
     Indication: NEURALGIA
     Dosage: 25 MG, 5 TIMES A DAY
     Route: 048
     Dates: start: 201212
  2. XARELTO [Suspect]
     Indication: ATRIAL FIBRILLATION
     Dosage: 15 MG, 1X/DAY
     Route: 048
     Dates: start: 20121212, end: 20130211
  3. SIMVASTATIN [Concomitant]
  4. TAREG [Concomitant]
     Dosage: UNK
     Dates: start: 201210
  5. LAMALINE [Concomitant]
     Dosage: UNK
     Dates: start: 201211
  6. SOTALOL [Concomitant]
     Dosage: UNK
     Dates: start: 201210

REACTIONS (2)
  - Weight decreased [Not Recovered/Not Resolved]
  - Blood albumin decreased [Not Recovered/Not Resolved]
